FAERS Safety Report 13947520 (Version 3)
Quarter: 2018Q1

REPORT INFORMATION
  Report Type: Spontaneous
  Country: US (occurrence: US)
  Receive Date: 20170908
  Receipt Date: 20180111
  Transmission Date: 20180508
  Serious: No
  Sender: FDA-Public Use
  Company Number: US-009507513-1708USA011452

PATIENT
  Age: 21 Year
  Sex: Female
  Weight: 63.04 kg

DRUGS (2)
  1. NEXPLANON [Suspect]
     Active Substance: ETONOGESTREL
     Indication: CONTRACEPTION
     Dosage: 1 ROD IN THE LEFT ARM EVERY 3 YEARS
     Route: 059
     Dates: start: 20140731
  2. ACCUTANE [Concomitant]
     Active Substance: ISOTRETINOIN

REACTIONS (3)
  - Menorrhagia [Unknown]
  - Incorrect drug administration duration [Unknown]
  - Haematuria [Unknown]

NARRATIVE: CASE EVENT DATE: 2017
